FAERS Safety Report 15673092 (Version 2)
Quarter: 2018Q4

REPORT INFORMATION
  Report Type: Spontaneous
  Country: ID (occurrence: ID)
  Receive Date: 20181129
  Receipt Date: 20181204
  Transmission Date: 20190205
  Serious: Yes (Death, Hospitalization, Other)
  Sender: FDA-Public Use
  Company Number: ID-ASTRAZENECA-2018SF55573

PATIENT
  Sex: Female
  Weight: 48 kg

DRUGS (3)
  1. GILOTRIF [Concomitant]
     Active Substance: AFATINIB
     Dates: start: 2016, end: 2018
  2. TAGRISSO [Suspect]
     Active Substance: OSIMERTINIB
     Indication: NON-SMALL CELL LUNG CANCER
     Route: 048
     Dates: start: 20181107
  3. VITAMINS NOS [Concomitant]
     Active Substance: VITAMINS

REACTIONS (4)
  - Condition aggravated [Fatal]
  - Platelet count decreased [Fatal]
  - Gastric haemorrhage [Fatal]
  - Productive cough [Fatal]
